FAERS Safety Report 14929097 (Version 2)
Quarter: 2021Q2

REPORT INFORMATION
  Report Type: Spontaneous
  Country: US (occurrence: US)
  Receive Date: 20180523
  Receipt Date: 20210624
  Transmission Date: 20210716
  Serious: Yes (Hospitalization)
  Sender: FDA-Public Use
  Company Number: US-ALLERGAN-1827090US

PATIENT
  Sex: Female

DRUGS (3)
  1. KYBELLA [Suspect]
     Active Substance: DEOXYCHOLIC ACID
     Indication: FAT TISSUE INCREASED
     Dosage: UNK, SINGLE
     Route: 058
     Dates: start: 20180505, end: 20180505
  2. WELLBUTRIN [Concomitant]
     Active Substance: BUPROPION HYDROCHLORIDE
     Indication: ANXIETY
     Dosage: UNK
  3. PHENTERMINE. [Concomitant]
     Active Substance: PHENTERMINE
     Indication: WEIGHT DECREASED
     Dosage: UNK

REACTIONS (18)
  - Condition aggravated [Unknown]
  - Injection site necrosis [Unknown]
  - Product colour issue [Unknown]
  - Muscular weakness [Unknown]
  - Off label use [Unknown]
  - Injection site infection [Unknown]
  - Asthenia [Unknown]
  - Injection site scar [Unknown]
  - Injection site cellulitis [Unknown]
  - Inflammation [Not Recovered/Not Resolved]
  - Skin disorder [Unknown]
  - Anxiety [Unknown]
  - Injection site abscess [Unknown]
  - Joint swelling [Unknown]
  - Wrong technique in product usage process [Unknown]
  - Injection site exfoliation [Unknown]
  - Poor quality product administered [Unknown]
  - Pain in extremity [Unknown]

NARRATIVE: CASE EVENT DATE: 201805
